FAERS Safety Report 23925601 (Version 1)
Quarter: 2024Q2

REPORT INFORMATION
  Report Type: Spontaneous
  Country: US (occurrence: US)
  Receive Date: 20240531
  Receipt Date: 20240531
  Transmission Date: 20240716
  Serious: No
  Sender: FDA-Public Use
  Company Number: US-INSUD PHARMA-2405US04280

PATIENT

DRUGS (1)
  1. SLYND [Suspect]
     Active Substance: DROSPIRENONE
     Indication: Endometriosis
     Dosage: UNK
     Route: 048
     Dates: start: 202402

REACTIONS (7)
  - Amenorrhoea [Unknown]
  - Weight increased [Unknown]
  - Acne [Not Recovered/Not Resolved]
  - Therapeutic response unexpected [Unknown]
  - Product prescribing issue [Unknown]
  - Product dose omission issue [Unknown]
  - Inability to afford medication [Unknown]

NARRATIVE: CASE EVENT DATE: 20240101
